FAERS Safety Report 8853435 (Version 6)
Quarter: 2014Q4

REPORT INFORMATION
  Report Type: Spontaneous
  Country: FR (occurrence: FR)
  Receive Date: 20121022
  Receipt Date: 20141110
  Transmission Date: 20150529
  Serious: Yes (Other)
  Sender: FDA-Public Use
  Company Number: FR-GLAXOSMITHKLINE-B0741425A

PATIENT
  Sex: Female

DRUGS (20)
  1. EQUANIL [Concomitant]
     Active Substance: MEPROBAMATE
     Route: 065
     Dates: start: 200506
  2. MANTADIX [Concomitant]
     Active Substance: AMANTADINE HYDROCHLORIDE
     Indication: PARKINSON^S DISEASE
     Route: 065
     Dates: start: 200812
  3. AZILECT [Concomitant]
     Active Substance: RASAGILINE MESYLATE
     Indication: PARKINSON^S DISEASE
     Route: 065
     Dates: start: 201110
  4. POTASSIUM [Concomitant]
     Active Substance: POTASSIUM
  5. SINEMET [Concomitant]
     Active Substance: CARBIDOPA\LEVODOPA
     Indication: PARKINSON^S DISEASE
     Route: 065
     Dates: start: 200606
  6. MOTILIUM [Concomitant]
     Active Substance: DOMPERIDONE
     Route: 065
  7. TROSPIUM CHLORIDE. [Concomitant]
     Active Substance: TROSPIUM CHLORIDE
     Route: 065
     Dates: start: 201106
  8. MIANSERINE [Concomitant]
     Active Substance: MIANSERIN HYDROCHLORIDE
  9. THIAMINE [Concomitant]
     Active Substance: THIAMINE
     Route: 065
     Dates: start: 2003
  10. REQUIP LP [Suspect]
     Active Substance: ROPINIROLE HYDROCHLORIDE
     Indication: PARKINSON^S DISEASE
     Route: 048
     Dates: start: 201108
  11. ROPINIROLE. [Concomitant]
     Active Substance: ROPINIROLE
  12. ATIVAN [Concomitant]
     Active Substance: LORAZEPAM
     Route: 065
     Dates: start: 200606
  13. REQUIP [Suspect]
     Active Substance: ROPINIROLE HYDROCHLORIDE
     Indication: PARKINSON^S DISEASE
     Dosage: UNK,
     Route: 048
     Dates: start: 200306, end: 2012
  14. MODOPAR [Concomitant]
     Active Substance: BENSERAZIDE HYDROCHLORIDE\LEVODOPA
     Indication: PARKINSON^S DISEASE
     Route: 065
     Dates: start: 200704
  15. COMTAN [Concomitant]
     Active Substance: ENTACAPONE
     Indication: PARKINSON^S DISEASE
     Route: 065
     Dates: start: 200704
  16. RIVOTRIL [Concomitant]
     Active Substance: CLONAZEPAM
     Route: 065
  17. EFFEXOR [Concomitant]
     Active Substance: VENLAFAXINE HYDROCHLORIDE
     Indication: ANXIETY
     Route: 065
     Dates: start: 200812
  18. LEXOMIL [Concomitant]
     Active Substance: BROMAZEPAM
     Route: 065
     Dates: start: 200911
  19. DITROPAN [Concomitant]
     Active Substance: OXYBUTYNIN CHLORIDE
     Route: 065
  20. INEXIUM [Concomitant]
     Active Substance: ESOMEPRAZOLE

REACTIONS (17)
  - Somnolence [Unknown]
  - Hallucinations, mixed [Not Recovered/Not Resolved]
  - Libido increased [Unknown]
  - Mental disorder [Unknown]
  - Eating disorder [Recovering/Resolving]
  - Hallucination, olfactory [Unknown]
  - Orthostatic hypotension [Unknown]
  - Pathological gambling [Recovering/Resolving]
  - Obsessive-compulsive disorder [Recovering/Resolving]
  - Prescribed overdose [Unknown]
  - Fall [Unknown]
  - Euphoric mood [Unknown]
  - Loss of consciousness [Recovered/Resolved]
  - Inappropriate schedule of drug administration [Unknown]
  - Malaise [Unknown]
  - Sleep disorder [Unknown]
  - Hypersexuality [Unknown]

NARRATIVE: CASE EVENT DATE: 2003
